FAERS Safety Report 8417219-5 (Version None)
Quarter: 2012Q2

REPORT INFORMATION
  Report Type: 
  Country: None (occurrence: None)
  Receive Date: 20120606
  Receipt Date: 20120530
  Transmission Date: 20120825
  Serious: Yes (Other)
  Sender: FDA-Public Use
  Company Number: US-ASTRAZENECA-2012SE05230

PATIENT
  Age: 63 Year
  Sex: Male
  Weight: 92.5 kg

DRUGS (1)
  1. CRESTOR [Suspect]
     Indication: ARTERIOSCLEROSIS
     Route: 048

REACTIONS (1)
  - INCLUSION BODY MYOSITIS [None]
